FAERS Safety Report 18388597 (Version 1)
Quarter: 2020Q4

REPORT INFORMATION
  Report Type: Spontaneous
  Country: US (occurrence: US)
  Receive Date: 20201015
  Receipt Date: 20201015
  Transmission Date: 20210114
  Serious: Yes (Other)
  Sender: FDA-Public Use
  Company Number: US-TEVA-2020-US-1837709

PATIENT
  Sex: Female

DRUGS (1)
  1. ALBUTEROL SULFATE HFA [Suspect]
     Active Substance: ALBUTEROL SULFATE
     Dosage: 16 SNI
     Route: 065

REACTIONS (4)
  - Choking [Unknown]
  - Device delivery system issue [Unknown]
  - Device defective [Unknown]
  - Tongue discomfort [Unknown]
